FAERS Safety Report 7427263 (Version 5)
Quarter: 2013Q2

REPORT INFORMATION
  Report Type: Report from Study
  Country: NL (occurrence: NL)
  Receive Date: 20100622
  Receipt Date: 20130606
  Transmission Date: 20140414
  Serious: Yes (Hospitalization)
  Sender: FDA-Public Use
  Company Number: NL-JNJFOC-20061000946

PATIENT
  Age: 28 Year
  Sex: Female
  Weight: 60 kg

DRUGS (3)
  1. INFLIXIMAB [Suspect]
     Indication: CROHN^S DISEASE
     Route: 042
     Dates: start: 20051010
  2. INFLIXIMAB [Suspect]
     Indication: CROHN^S DISEASE
     Route: 042
     Dates: start: 20050729
  3. METHOTREXATE [Concomitant]
     Indication: CROHN^S DISEASE
     Dates: start: 20050802

REACTIONS (4)
  - Impaired healing [Recovered/Resolved]
  - Postoperative hernia [Recovered/Resolved]
  - Postoperative abscess [Recovered/Resolved]
  - Crohn^s disease [Recovered/Resolved]
